FAERS Safety Report 5403147-6 (Version None)
Quarter: 2007Q3

REPORT INFORMATION
  Report Type: 
  Country: None (occurrence: None)
  Receive Date: 20070801
  Receipt Date: 20070725
  Transmission Date: 20080115
  Serious: Yes (Hospitalization)
  Sender: FDA-Public Use
  Company Number: DE-BOEHRINGER INGELHEIM PHARMACEUTICALS, INC.-2007-DE-03777DE

PATIENT
  Sex: Female
  Weight: 10 kg

DRUGS (2)
  1. ATROVENT [Suspect]
     Dosage: 7 PUFFS
     Route: 055
  2. SALBUTAMOL (NON BI) [Suspect]
     Dosage: 7 DROPS
     Route: 055

REACTIONS (5)
  - ACCIDENTAL OVERDOSE [None]
  - DIZZINESS [None]
  - MEDICATION ERROR [None]
  - PNEUMONIA [None]
  - VOMITING [None]
